FAERS Safety Report 7582081 (Version 19)
Quarter: 2013Q3

REPORT INFORMATION
  Report Type: Spontaneous
  Country: US (occurrence: US)
  Receive Date: 20100913
  Receipt Date: 20130827
  Transmission Date: 20140515
  Serious: Yes (Hospitalization, Other)
  Sender: FDA-Public Use
  Company Number: PHEH2010US03714

PATIENT
  Sex: Male

DRUGS (10)
  1. ZOMETA [Suspect]
     Route: 042
  2. ELAVIL [Concomitant]
     Dosage: 50 MG, UNK
  3. KEFLEX [Concomitant]
  4. IBUPROFEN [Concomitant]
  5. LORTAB [Concomitant]
  6. CEPHALEXIN [Concomitant]
  7. LUPRON [Concomitant]
  8. MEPERGAN [Concomitant]
  9. FENTANYL [Concomitant]
     Dosage: 75 MG, UNK
  10. EFFEXOR [Concomitant]

REACTIONS (77)
  - Prostate cancer metastatic [Unknown]
  - Metastases to bone [Unknown]
  - Back pain [Recovering/Resolving]
  - Eye injury [Unknown]
  - Gastrooesophageal reflux disease [Unknown]
  - Dysphagia [Unknown]
  - Constipation [Unknown]
  - Vomiting [Recovered/Resolved]
  - Nausea [Recovered/Resolved]
  - Intervertebral disc protrusion [Unknown]
  - Hypoaesthesia [Unknown]
  - Paraesthesia [Unknown]
  - Osteitis deformans [Unknown]
  - Spinal pain [Unknown]
  - Exostosis [Unknown]
  - Osteonecrosis of jaw [Unknown]
  - Pain [Unknown]
  - Dyspepsia [Unknown]
  - Deformity [Unknown]
  - Stress [Unknown]
  - Decreased interest [Unknown]
  - Oral infection [Unknown]
  - Fistula [Unknown]
  - Exposed bone in jaw [Unknown]
  - Flushing [Unknown]
  - Tooth loss [Unknown]
  - Osteitis [Unknown]
  - Anxiety [Unknown]
  - Embolism venous [Unknown]
  - Depression [Unknown]
  - Osteomyelitis [Unknown]
  - Sinusitis [Unknown]
  - Urinary tract infection [Unknown]
  - Ear pain [Unknown]
  - Metastases to bone marrow [Unknown]
  - Lumbar spinal stenosis [Unknown]
  - Lumbar radiculopathy [Unknown]
  - Fibromyalgia [Unknown]
  - Lymphadenopathy [Unknown]
  - Spinal cord neoplasm [Unknown]
  - Skin papilloma [Unknown]
  - Squamous cell carcinoma [Unknown]
  - Meniscus injury [Unknown]
  - Joint effusion [Unknown]
  - Aortic arteriosclerosis [Unknown]
  - Haemorrhoids [Unknown]
  - Haematochezia [Unknown]
  - Insomnia [Unknown]
  - Sleep apnoea syndrome [Unknown]
  - Benign anorectal neoplasm [Unknown]
  - Large intestine benign neoplasm [Unknown]
  - Cardiac murmur [Unknown]
  - Nephrolithiasis [Unknown]
  - Neck mass [Unknown]
  - Headache [Unknown]
  - Swelling [Not Recovered/Not Resolved]
  - Abdominal pain [Unknown]
  - Dehydration [Unknown]
  - Oedema peripheral [Unknown]
  - Diverticulum [Unknown]
  - Muscle spasms [Unknown]
  - Osteoarthritis [Unknown]
  - Hot flush [Unknown]
  - Night sweats [Unknown]
  - Spinal osteoarthritis [Unknown]
  - Osteoarthropathy [Unknown]
  - Polyneuropathy [Unknown]
  - Type 2 diabetes mellitus [Unknown]
  - Osteosclerosis [Unknown]
  - Metastases to spine [Unknown]
  - Deep vein thrombosis [Unknown]
  - Mononeuritis [Unknown]
  - Ligament disorder [Unknown]
  - Osteolysis [Unknown]
  - Aortic calcification [Unknown]
  - Phlebolith [Unknown]
  - Gingival disorder [Unknown]
